FAERS Safety Report 15730484 (Version 2)
Quarter: 2019Q1

REPORT INFORMATION
  Report Type: Spontaneous
  Country: US (occurrence: US)
  Receive Date: 20181217
  Receipt Date: 20190319
  Transmission Date: 20190417
  Serious: Yes (Other)
  Sender: FDA-Public Use
  Company Number: US-SA-2018SA338712

PATIENT
  Sex: Female

DRUGS (9)
  1. TAXOTERE [Suspect]
     Active Substance: DOCETAXEL
     Indication: BREAST CANCER
     Dosage: 180 MG, UNK
     Route: 042
     Dates: start: 20061226, end: 20061226
  2. TAXOTERE [Suspect]
     Active Substance: DOCETAXEL
     Dosage: 180 MG, UNK
     Route: 042
     Dates: start: 20070526, end: 20070526
  3. BENADRYL [Concomitant]
     Active Substance: DIPHENHYDRAMINE HYDROCHLORIDE
  4. TAXOTERE [Suspect]
     Active Substance: DOCETAXEL
     Dosage: 180 MG, UNK
     Route: 042
     Dates: start: 20070305, end: 20070305
  5. CYTOXAN [Concomitant]
     Active Substance: CYCLOPHOSPHAMIDE
  6. ANZEMET [Concomitant]
     Active Substance: DOLASETRON MESYLATE
  7. TAGAMET [Concomitant]
     Active Substance: CIMETIDINE
  8. TAXOTERE [Suspect]
     Active Substance: DOCETAXEL
     Dosage: 180 MG, UNK
     Route: 042
     Dates: start: 20070115, end: 20070115
  9. DECADRON [Concomitant]
     Active Substance: DEXAMETHASONE

REACTIONS (1)
  - Alopecia [Not Recovered/Not Resolved]

NARRATIVE: CASE EVENT DATE: 200612
